FAERS Safety Report 7455953-4 (Version None)
Quarter: 2011Q2

REPORT INFORMATION
  Report Type: 
  Country: None (occurrence: None)
  Receive Date: 20110503
  Receipt Date: 20110426
  Transmission Date: 20111010
  Serious: Yes (Other)
  Sender: FDA-Public Use
  Company Number: US-ALEXION-A201100266

PATIENT
  Sex: Female
  Weight: 83 kg

DRUGS (13)
  1. MAXZIDE [Concomitant]
     Dosage: 37.5/25 MG, QD
     Route: 048
  2. KEPPRA [Concomitant]
     Indication: PROPHYLAXIS
     Dosage: 750 MG, BID
  3. ATENOLOL [Concomitant]
     Indication: HYPERTENSION
     Dosage: 25 MG, BID
     Route: 048
  4. SOLIRIS [Suspect]
     Indication: PAROXYSMAL NOCTURNAL HAEMOGLOBINURIA
     Dosage: 600 MG, QW
     Route: 042
     Dates: start: 20101108, end: 20101101
  5. LEXAPRO [Concomitant]
     Dosage: 10 MG, QD
  6. FOLIC ACID [Concomitant]
     Dosage: 1 MG, BID
  7. PRILOSEC [Concomitant]
     Dosage: 20 MG, QD
  8. LANTUS [Concomitant]
     Indication: DIABETES MELLITUS
     Dosage: 50 UG, QD
     Route: 058
  9. GLUCOPHAGE [Concomitant]
     Dosage: 500 MG, BID
     Route: 048
  10. SOLIRIS [Suspect]
     Dosage: 900 MG, Q2W
     Route: 042
     Dates: start: 20101201
  11. LOVENOX [Concomitant]
     Indication: THROMBOSIS PROPHYLAXIS
     Dosage: UNK, BID
     Route: 058
  12. VASOTEC [Concomitant]
     Dosage: 20 MG, BID
     Route: 048
  13. ZOCOR [Concomitant]
     Indication: HYPERLIPIDAEMIA
     Dosage: 40 MG, QD
     Route: 048

REACTIONS (3)
  - IDIOPATHIC THROMBOCYTOPENIC PURPURA [None]
  - DIARRHOEA [None]
  - NON-HODGKIN'S LYMPHOMA [None]
